FAERS Safety Report 18953613 (Version 1)
Quarter: 2021Q1

REPORT INFORMATION
  Report Type: Spontaneous
  Country: US (occurrence: US)
  Receive Date: 20210301
  Receipt Date: 20210301
  Transmission Date: 20210420
  Serious: Yes (Hospitalization)
  Sender: FDA-Public Use
  Company Number: None

PATIENT
  Age: 34 Year
  Sex: Male

DRUGS (1)
  1. HUMIRA [Suspect]
     Active Substance: ADALIMUMAB
     Indication: CROHN^S DISEASE
     Dosage: ?          OTHER FREQUENCY:EVERY OTHER WEEK;?
     Route: 058
     Dates: start: 20190619

REACTIONS (5)
  - Abdominal pain [None]
  - Diarrhoea [None]
  - Weight abnormal [None]
  - Crohn^s disease [None]
  - Bacterial infection [None]

NARRATIVE: CASE EVENT DATE: 20210226
